FAERS Safety Report 6901455-0 (Version None)
Quarter: 2010Q3

REPORT INFORMATION
  Report Type: 
  Country: None (occurrence: None)
  Receive Date: 20100803
  Receipt Date: 20080207
  Transmission Date: 20110219
  Serious: No
  Sender: FDA-Public Use
  Company Number: US-PFIZER INC-2008013333

PATIENT
  Sex: Male
  Weight: 90.7 kg

DRUGS (7)
  1. LYRICA [Suspect]
     Indication: LUMBAR SPINAL STENOSIS
     Dates: start: 20080101
  2. LOTREL [Concomitant]
  3. TOPROL-XL [Concomitant]
  4. ACETYLSALICYLIC ACID SRT [Concomitant]
  5. FOLIC ACID [Concomitant]
  6. VITAMIN B-12 [Concomitant]
  7. ALEVE (CAPLET) [Concomitant]

REACTIONS (1)
  - DRUG INEFFECTIVE [None]
